FAERS Safety Report 20334083 (Version 1)
Quarter: 2022Q1

REPORT INFORMATION
  Report Type: Spontaneous
  Country: US (occurrence: US)
  Receive Date: 20220113
  Receipt Date: 20220113
  Transmission Date: 20220423
  Serious: Yes (Death, Other)
  Sender: FDA-Public Use
  Company Number: US-APOTEX-2022AP001109

PATIENT
  Age: 53 Year
  Sex: Female

DRUGS (5)
  1. DIPHENHYDRAMINE [Suspect]
     Active Substance: DIPHENHYDRAMINE
     Indication: Product used for unknown indication
     Dosage: UNK
     Route: 065
  2. GABAPENTIN [Suspect]
     Active Substance: GABAPENTIN
     Indication: Product used for unknown indication
     Dosage: UNK
     Route: 065
  3. CLONIDINE [Suspect]
     Active Substance: CLONIDINE
     Indication: Product used for unknown indication
     Dosage: UNK
     Route: 065
  4. MORPHINE [Suspect]
     Active Substance: MORPHINE
     Indication: Product used for unknown indication
     Dosage: UNK
     Route: 065
  5. BUTALBITAL [Suspect]
     Active Substance: BUTALBITAL
     Indication: Product used for unknown indication
     Dosage: UNK
     Route: 065

REACTIONS (1)
  - Intentional product use issue [Fatal]
